FAERS Safety Report 6841788-X (Version None)
Quarter: 2010Q3

REPORT INFORMATION
  Report Type: 
  Country: None (occurrence: None)
  Receive Date: 20100709
  Receipt Date: 20100625
  Transmission Date: 20110219
  Serious: Yes (Other)
  Sender: FDA-Public Use
  Company Number: 2010PV000020

PATIENT
  Sex: Male

DRUGS (1)
  1. DEPOCYT [Suspect]
     Indication: LEUKAEMIA

REACTIONS (3)
  - ANORECTAL DISORDER [None]
  - BLADDER DYSFUNCTION [None]
  - CAUDA EQUINA SYNDROME [None]
